FAERS Safety Report 15012371 (Version 1)
Quarter: 2018Q2

REPORT INFORMATION
  Report Type: Spontaneous
  Country: GB (occurrence: GB)
  Receive Date: 20180614
  Receipt Date: 20180614
  Transmission Date: 20180711
  Serious: Yes (Other)
  Sender: FDA-Public Use
  Company Number: GB-TEVA-2018-GB-907017

PATIENT
  Age: 66 Year
  Sex: Female
  Weight: 88 kg

DRUGS (7)
  1. SIMVASTATIN. [Concomitant]
     Active Substance: SIMVASTATIN
     Dosage: 1 DOSAGE FORMS DAILY; AT NIGHT
     Dates: start: 20090319, end: 20180413
  2. AVAMYS [Concomitant]
     Active Substance: FLUTICASONE FUROATE
     Dosage: 2 DOSAGE FORMS DAILY; TO BE USED IN EACH NOSTRIL.
     Route: 045
     Dates: start: 20160422, end: 20180413
  3. PHENOXYMETHYLPENICILLIN [Suspect]
     Active Substance: PENICILLIN V
     Route: 065
     Dates: start: 20180416
  4. CETIRIZINE [Concomitant]
     Active Substance: CETIRIZINE HYDROCHLORIDE
     Dosage: 1 DOSAGE FORMS DAILY;
     Dates: start: 20080331, end: 20180413
  5. SALBUTAMOL [Concomitant]
     Active Substance: ALBUTEROL
     Indication: SEASONAL ALLERGY
     Dates: start: 20130402, end: 20180413
  6. SALOFALK [Concomitant]
     Active Substance: MESALAMINE
     Dosage: 2 DOSAGE FORMS DAILY;
     Dates: start: 20080331, end: 20180413
  7. QVAR [Concomitant]
     Active Substance: BECLOMETHASONE DIPROPIONATE
     Dosage: 4 DOSAGE FORMS DAILY; PUFFS
     Route: 055
     Dates: start: 20170808, end: 20180413

REACTIONS (1)
  - Swelling face [Recovered/Resolved]

NARRATIVE: CASE EVENT DATE: 20180416
